FAERS Safety Report 4860782-1 (Version None)
Quarter: 2005Q4

REPORT INFORMATION
  Report Type: 
  Country: None (occurrence: None)
  Receive Date: 20051216
  Receipt Date: 20051216
  Transmission Date: 20060501
  Serious: No
  Sender: FDA-Public Use
  Company Number: None

PATIENT
  Age: 17 Year
  Sex: Male

DRUGS (1)
  1. PEGASPARAGINASE [Suspect]

REACTIONS (2)
  - GLYCOSURIA [None]
  - HYPERGLYCAEMIA [None]
